FAERS Safety Report 9225692 (Version 1)
Quarter: 2013Q2

REPORT INFORMATION
  Report Type: Spontaneous
  Country: US (occurrence: US)
  Receive Date: 20130411
  Receipt Date: 20130411
  Transmission Date: 20140414
  Serious: No
  Sender: FDA-Public Use
  Company Number: US-009507513-1303USA013486

PATIENT
  Age: 45 Year
  Sex: Female
  Weight: 62.59 kg

DRUGS (5)
  1. MIRALAX [Suspect]
     Indication: FUNCTIONAL GASTROINTESTINAL DISORDER
     Dosage: UNK, QD
     Route: 048
  2. MIRALAX [Suspect]
     Indication: MEDICAL OBSERVATION
     Dosage: 25.5 G, UNKNOWN
     Route: 048
     Dates: start: 201211
  3. LEVOTHYROXINE SODIUM [Concomitant]
     Indication: HYPOTHYROIDISM
     Dosage: UNK, UNKNOWN
  4. LINZESS [Concomitant]
     Indication: IRRITABLE BOWEL SYNDROME
     Dosage: UNK, UNKNOWN
  5. LINZESS [Concomitant]
     Indication: FUNCTIONAL GASTROINTESTINAL DISORDER

REACTIONS (3)
  - Incorrect drug administration duration [Unknown]
  - Overdose [Unknown]
  - Off label use [Unknown]
